FAERS Safety Report 23790899 (Version 3)
Quarter: 2024Q3

REPORT INFORMATION
  Report Type: Report from Study
  Country: FR (occurrence: None)
  Receive Date: 20240427
  Receipt Date: 20240812
  Transmission Date: 20241017
  Serious: Yes (Hospitalization, Other)
  Sender: ASTRAZENECA
  Company Number: 2024A095714

PATIENT
  Sex: Male
  Weight: 80 kg

DRUGS (1)
  1. IMFINZI [Suspect]
     Active Substance: DURVALUMAB
     Indication: HER2 positive biliary tract cancer
     Dosage: 1500 MG EVERY THREE WEEKS
     Route: 042
     Dates: start: 20240122, end: 20240122

REACTIONS (3)
  - Myocarditis [Recovered/Resolved]
  - Off label use [Unknown]
  - Troponin increased [Unknown]
